FAERS Safety Report 4622699-7 (Version None)
Quarter: 2005Q1

REPORT INFORMATION
  Report Type: 
  Country: None (occurrence: None)
  Receive Date: 20050329
  Receipt Date: 20050329
  Transmission Date: 20050727
  Serious: Yes (Life-Threatening, Hospitalization)
  Sender: FDA-Public Use
  Company Number: None

PATIENT
  Age: 46 Year
  Sex: Male
  Weight: 98.5 kg

DRUGS (6)
  1. ROSIGLITAZONE [Suspect]
     Indication: DIABETES MELLITUS
     Dosage: 4 MG   ONCE DAILY  ORAL
     Route: 048
     Dates: start: 20040101, end: 20050315
  2. LISINOPRIL [Concomitant]
  3. ASPIRIN [Concomitant]
  4. COLACE [Concomitant]
  5. AMBIEN [Concomitant]
  6. INSULIN [Concomitant]

REACTIONS (4)
  - ABDOMINAL DISTENSION [None]
  - DYSPNOEA EXERTIONAL [None]
  - DYSPNOEA PAROXYSMAL NOCTURNAL [None]
  - OEDEMA PERIPHERAL [None]
